FAERS Safety Report 8150203 (Version 3)
Quarter: 2013Q1

REPORT INFORMATION
  Report Type: Spontaneous
  Country: US (occurrence: US)
  Receive Date: 20110922
  Receipt Date: 20130218
  Transmission Date: 20140127
  Serious: Yes (Other)
  Sender: FDA-Public Use
  Company Number: US-ASTRAZENECA-2011SE12747

PATIENT
  Age: 45 Year
  Sex: Male

DRUGS (12)
  1. SEROQUEL [Suspect]
     Route: 048
     Dates: start: 20040220
  2. WELLBUTRIN XL [Concomitant]
     Dates: start: 20031025
  3. ABILIFY [Concomitant]
     Dates: start: 20031126
  4. HYDROXYZINE HCL [Concomitant]
     Dates: start: 20040213
  5. TRAZADONE [Concomitant]
     Dates: start: 20040217
  6. AMOXICILLIN [Concomitant]
     Dates: start: 20040302
  7. CLONIDINE HCL [Concomitant]
     Dates: start: 20040324
  8. AMBIEN [Concomitant]
     Dates: start: 20040326
  9. ACETAMINOPHEN/COD [Concomitant]
     Dates: start: 20040416
  10. MIRTAZAPINE [Concomitant]
     Dates: start: 20040603
  11. CELEXA [Concomitant]
     Dates: start: 200907
  12. INVEGA [Concomitant]
     Dates: start: 200907

REACTIONS (3)
  - Pancreatitis [Unknown]
  - Diabetic coma [Unknown]
  - Type 2 diabetes mellitus [Unknown]
